FAERS Safety Report 7047283-X (Version None)
Quarter: 2010Q4

REPORT INFORMATION
  Report Type: 
  Country: None (occurrence: None)
  Receive Date: 20101015
  Receipt Date: 20101007
  Transmission Date: 20110411
  Serious: Yes (Death)
  Sender: FDA-Public Use
  Company Number: PL-ROCHE-732005

PATIENT
  Sex: Male

DRUGS (3)
  1. HERCEPTIN [Suspect]
     Route: 065
  2. CISPLATIN [Concomitant]
  3. FLUOROURACIL [Concomitant]

REACTIONS (1)
  - DEATH [None]
